FAERS Safety Report 11638657 (Version 1)
Quarter: 2015Q4

REPORT INFORMATION
  Report Type: Spontaneous
  Country: US (occurrence: US)
  Receive Date: 20151016
  Receipt Date: 20151016
  Transmission Date: 20160304
  Serious: Yes (Other)
  Sender: FDA-Public Use
  Company Number: US-BAXTER-2015BAX055434

PATIENT
  Age: 15 Month
  Sex: Male

DRUGS (30)
  1. CARBOPLATIN. [Suspect]
     Active Substance: CARBOPLATIN
     Dosage: PROTOCOL RISK INTERMEDIATE-CYCLE -2,DAY 1
     Route: 065
  2. ETOPOSIDE. [Suspect]
     Active Substance: ETOPOSIDE
     Dosage: HIGH RISK PROTOCOL- CYCLE 5, DOSE 150MG/M2-DOSE REDUCTION 25 PERCENT-DAYS1-3
     Route: 065
  3. CISPLATIN. [Suspect]
     Active Substance: CISPLATIN
     Dosage: HIGH RISK PROTOCOL- CYCLE 5-DOSE 37.5 MG/M2-25% DOSE REDUCTION-DAYS 1-4
     Route: 065
  4. TEMOZOLOMIDE. [Suspect]
     Active Substance: TEMOZOLOMIDE
     Dosage: PROGRESSIVE DISEASE THERAPIES- CYCLE 2- DOSE 75MG/M2- DOSE REDUCTION 25%- DAYS 1-5
     Route: 065
  5. CYCLOPHOSPHAMIDE FOR INJECTION, USP [Suspect]
     Active Substance: CYCLOPHOSPHAMIDE
     Route: 065
  6. ETOPOSIDE. [Suspect]
     Active Substance: ETOPOSIDE
     Indication: NEUROBLASTOMA
     Dosage: PROTOCOL RISK INTERMEDIATE- CYCLE-1, 3, 4, 5 AND 7- DAYS 1-3
     Route: 065
  7. VINCRISTINE [Suspect]
     Active Substance: VINCRISTINE
     Indication: NEUROBLASTOMA
     Dosage: HIGH RISK PROTOCOL- CYCLE 4- DOSE 0.011 MG/KG- DOSE REDUCTION 50%- DAYS 1-3
     Route: 065
  8. TEMOZOLOMIDE. [Suspect]
     Active Substance: TEMOZOLOMIDE
     Indication: NEUROBLASTOMA RECURRENT
     Dosage: PROGRESSIVE DISEASE THERAPIES- CYCLE 1- DAYS 1-5
     Route: 065
  9. IRINOTECAN [Suspect]
     Active Substance: IRINOTECAN
     Indication: NEUROBLASTOMA RECURRENT
     Dosage: PROGRESSIVE DISEASE THERAPIES- CYCLE-1-DOSE 20 MG/M2-DOSE REDUCTION 60%- DAYS 1-5
     Route: 065
  10. CYCLOPHOSPHAMIDE FOR INJECTION, USP [Suspect]
     Active Substance: CYCLOPHOSPHAMIDE
     Dosage: PROTOCOL RISK INTERMEDIATE-CYCLE 5- DAY 1
     Route: 065
  11. CARBOPLATIN. [Suspect]
     Active Substance: CARBOPLATIN
     Dosage: PROTOCOL RISK INTERMEDIATE-CYCLE-6-DAY 1
     Route: 065
  12. 13-CIS-RETINOIC ACID [Suspect]
     Active Substance: ISOTRETINOIN
     Dosage: HIGH RISK PROTOCOL-(80 MG/M2/ DAY , 50% DOSE REDUCTION) APPROXIMATELY DAYS 1-14
     Route: 065
  13. CYCLOPHOSPHAMIDE FOR INJECTION, USP [Suspect]
     Active Substance: CYCLOPHOSPHAMIDE
     Dosage: HIGH RISK PROTOCOL- CYCLE 6, DOSE 1575 MG/M2, DOSE REDUCED TO 25 PERCENT- DAYS 1-2
     Route: 065
  14. DOXORUBICIN [Suspect]
     Active Substance: DOXORUBICIN
     Dosage: HIGH RISK PROTOCOL- CYCLE 4 -DOSE 12.5 MG/M2- DOSE REDUCTION 50 PERCENT-DAYS 1-3
     Route: 065
  15. CYCLOPHOSPHAMIDE FOR INJECTION, USP [Suspect]
     Active Substance: CYCLOPHOSPHAMIDE
     Indication: NEUROBLASTOMA
     Dosage: PROTOCOL RISK INTERMEDIATE-CYCLE 2-DAY 1
     Route: 065
  16. CARBOPLATIN. [Suspect]
     Active Substance: CARBOPLATIN
     Dosage: PROTOCOL RISK INTERMEDIATE-CYCLE-7-DAY 1
     Route: 065
  17. DOXORUBICIN [Suspect]
     Active Substance: DOXORUBICIN
     Dosage: HIGH RISK PROTOCOL- CYCLE 6- DOSE 19MG/M2- DOSE REDUCTION 25%- DAYS1-3
     Route: 065
  18. CYCLOPHOSPHAMIDE FOR INJECTION, USP [Suspect]
     Active Substance: CYCLOPHOSPHAMIDE
     Dosage: PROTOCOL RISK INTERMEDIATE-CYCLE 3-DAY 1
     Route: 065
  19. CYCLOPHOSPHAMIDE FOR INJECTION, USP [Suspect]
     Active Substance: CYCLOPHOSPHAMIDE
     Route: 065
  20. CYCLOPHOSPHAMIDE FOR INJECTION, USP [Suspect]
     Active Substance: CYCLOPHOSPHAMIDE
     Dosage: HIGH RISK PROTOCOL- CYCLE 4, DOSE 1050MG/M2, DOSE REDUCED TO 50 PERCENT-DAYS 1-2
     Route: 065
  21. CARBOPLATIN. [Suspect]
     Active Substance: CARBOPLATIN
     Dosage: PROTOCOL RISK INTERMEDIATE-CYCLE- 4, DAY 1
     Route: 065
  22. CYCLOPHOSPHAMIDE FOR INJECTION, USP [Suspect]
     Active Substance: CYCLOPHOSPHAMIDE
     Dosage: PROTOCOL RISK INTERMEDIATE-CYCLE 6 - DAY 1
     Route: 065
  23. TOPOTECAN [Suspect]
     Active Substance: TOPOTECAN\TOPOTECAN HYDROCHLORIDE
     Indication: NEUROBLASTOMA
     Dosage: HIGH RISK PROTOCOL (CYCLE 1 AND 2) DAYS 1-5
     Route: 065
  24. CISPLATIN. [Suspect]
     Active Substance: CISPLATIN
     Indication: NEUROBLASTOMA
     Dosage: HIGH RISK PROTOCOL-CYCLE 3- DOSE 25MG/M2-DOSE REDUCTION 50%-DAYS 1-4
     Route: 065
  25. IRINOTECAN [Suspect]
     Active Substance: IRINOTECAN
     Dosage: PROGRESSIVE DISEASE THERAPIES- CYCLE 2- DOSE 37.5MG/M2- DOSE REDUCTION 25%- DAYS 1-5
     Route: 065
  26. CARBOPLATIN. [Suspect]
     Active Substance: CARBOPLATIN
     Indication: NEUROBLASTOMA
     Dosage: PROTOCOL RISK INTERMEDIATE-CYCLE-1, DAY 1
     Route: 065
  27. ETOPOSIDE. [Suspect]
     Active Substance: ETOPOSIDE
     Dosage: HIGH RISK PROTOCOL- CYCLE-3, DOSE 100MG/M2-DOSE REDUCTION 50 PERCENT- DAYS 1-3
     Route: 065
  28. DOXORUBICIN [Suspect]
     Active Substance: DOXORUBICIN
     Indication: NEUROBLASTOMA
     Dosage: PROTOCOL RISK INTERMEDIATE- CYCLE 2, 4 AND 6- DAY 1
     Route: 065
  29. 13-CIS-RETINOIC ACID [Suspect]
     Active Substance: ISOTRETINOIN
     Indication: NEUROBLASTOMA
     Dosage: HIGH RISK PROTOCOL- APPROXIMATELY DAYS 1-14
     Route: 065
  30. VINCRISTINE [Suspect]
     Active Substance: VINCRISTINE
     Dosage: HIGH RISK PROTOCOL- CYCLE 6- DOSE 0.017MG/KG- DOSE REDUCTION 25% DAYS 1-3
     Route: 065

REACTIONS (6)
  - Mucosal inflammation [Recovered/Resolved]
  - Pyrexia [Recovered/Resolved]
  - Faecal volume increased [Recovered/Resolved]
  - Neutropenia [Recovered/Resolved]
  - Neuroblastoma recurrent [Recovered/Resolved]
  - Deafness neurosensory [Unknown]
